FAERS Safety Report 24367360 (Version 1)
Quarter: 2024Q3

REPORT INFORMATION
  Report Type: Spontaneous
  Country: EG (occurrence: EG)
  Receive Date: 20240926
  Receipt Date: 20240926
  Transmission Date: 20241016
  Serious: Yes (Death)
  Sender: GE HEALTHCARE
  Company Number: EG-GE HEALTHCARE-2024CSU010853

PATIENT
  Sex: Female

DRUGS (2)
  1. OMNIPAQUE [Suspect]
     Active Substance: IOHEXOL
     Indication: Computerised tomogram thorax
     Dosage: 50 ML, TOTAL
     Route: 042
     Dates: start: 20240907, end: 20240907
  2. OMNIPAQUE [Suspect]
     Active Substance: IOHEXOL
     Indication: Computerised tomogram thorax
     Dosage: 100 ML, TOTAL
     Route: 042
     Dates: start: 20240907, end: 20240907

REACTIONS (5)
  - Bone pain [Fatal]
  - Cardiac arrest [Fatal]
  - Hypotension [Fatal]
  - Pyrexia [Fatal]
  - Vomiting [Fatal]

NARRATIVE: CASE EVENT DATE: 20240907
